FAERS Safety Report 13040926 (Version 4)
Quarter: 2017Q1

REPORT INFORMATION
  Report Type: Spontaneous
  Country: CA (occurrence: CA)
  Receive Date: 20161219
  Receipt Date: 20170111
  Transmission Date: 20170428
  Serious: Yes (Other)
  Sender: FDA-Public Use
  Company Number: CA-CELLTRION INC.-2016CA013281

PATIENT

DRUGS (9)
  1. INFLIXIMAB HOSPIRA [Suspect]
     Active Substance: INFLIXIMAB
     Indication: COLITIS ULCERATIVE
     Dosage: 355 MG, CYCLIC (EVERY 0,2,6 WEEKS THEN EVERY 4 WEEKS FOR 12 MONTHS)
     Route: 042
     Dates: start: 20161007
  2. VITAMIN D                          /00107901/ [Concomitant]
     Active Substance: ERGOCALCIFEROL
     Dosage: UNK
  3. CALCIUM [Concomitant]
     Active Substance: CALCIUM
     Dosage: UNK
  4. INFLIXIMAB HOSPIRA [Suspect]
     Active Substance: INFLIXIMAB
     Dosage: 751 MG, CYCLIC  EVERY 4 WEEKS FOR 12 MONTHS
     Route: 042
  5. PANTOPRAZOLE [Concomitant]
     Active Substance: PANTOPRAZOLE SODIUM
     Dosage: UNK
  6. INFLIXIMAB HOSPIRA [Suspect]
     Active Substance: INFLIXIMAB
     Dosage: 751 MG, CYCLIC (EVERY 4 WEEKS FOR 12 MONTHS)
     Route: 042
     Dates: end: 20161214
  7. INFLIXIMAB HOSPIRA [Suspect]
     Active Substance: INFLIXIMAB
     Dosage: 5 MG/KG (EVERY 8 WEEKS)
     Route: 042
  8. INFLIXIMAB HOSPIRA [Suspect]
     Active Substance: INFLIXIMAB
     Dosage: 355 MG, CYCLIC (EVERY 0,2,6 WEEKS THEN EVERY 4 WEEKS FOR 12 MONTHS)
     Route: 042
     Dates: start: 20161007
  9. INFLIXIMAB HOSPIRA [Suspect]
     Active Substance: INFLIXIMAB
     Dosage: 760 MG, (5MG/KG, EVERY 4 WEEKS FOR 12 MONTHS)
     Route: 042
     Dates: start: 20161123

REACTIONS (5)
  - Condition aggravated [Not Recovered/Not Resolved]
  - Blood iron decreased [Unknown]
  - Colitis ulcerative [Not Recovered/Not Resolved]
  - Fatigue [Unknown]
  - Antibody test abnormal [Unknown]

NARRATIVE: CASE EVENT DATE: 20161019
